FAERS Safety Report 6450807-4 (Version None)
Quarter: 2009Q4

REPORT INFORMATION
  Report Type: 
  Country: None (occurrence: None)
  Receive Date: 20091123
  Receipt Date: 20091117
  Transmission Date: 20100525
  Serious: Yes (Death, Other)
  Sender: FDA-Public Use
  Company Number: US-CELGENEUS-163-21880-09041412

PATIENT
  Sex: Male

DRUGS (2)
  1. REVLIMID [Suspect]
     Route: 048
     Dates: start: 20090101
  2. REVLIMID [Suspect]
     Route: 048
     Dates: start: 20081001

REACTIONS (1)
  - ISCHAEMIC CEREBRAL INFARCTION [None]
